FAERS Safety Report 9245002 (Version 4)
Quarter: 2013Q3

REPORT INFORMATION
  Report Type: Spontaneous
  Country: PE (occurrence: PE)
  Receive Date: 20130422
  Receipt Date: 20130821
  Transmission Date: 20140515
  Serious: Yes (Hospitalization, Other)
  Sender: FDA-Public Use
  Company Number: PE-JNJFOC-20130408279

PATIENT
  Age: 61 Year
  Sex: Female

DRUGS (5)
  1. STELARA [Suspect]
     Indication: PSORIASIS
     Route: 058
  2. CLONAZEPAM [Concomitant]
     Indication: SLEEP DISORDER THERAPY
     Route: 065
  3. CHLORPHENIRAMINE [Concomitant]
     Indication: PRODUCT USED FOR UNKNOWN INDICATION
     Dosage: MORNING AND NIGHT
     Route: 065
  4. SERTRALINE [Concomitant]
     Indication: SLEEP DISORDER THERAPY
     Route: 065
  5. CETIRIZINE [Concomitant]
     Indication: PRODUCT USED FOR UNKNOWN INDICATION
     Route: 065

REACTIONS (5)
  - Psoriasis [Unknown]
  - Rash [Unknown]
  - Depression [Not Recovered/Not Resolved]
  - Drug effect decreased [Unknown]
  - Drug dose omission [Not Recovered/Not Resolved]
